FAERS Safety Report 15315107 (Version 10)
Quarter: 2019Q1

REPORT INFORMATION
  Report Type: Spontaneous
  Country: US (occurrence: US)
  Receive Date: 20180824
  Receipt Date: 20190218
  Transmission Date: 20190417
  Serious: Yes (Other)
  Sender: FDA-Public Use
  Company Number: US-GLAXOSMITHKLINE-US2018GSK153634

PATIENT
  Sex: Male

DRUGS (3)
  1. PREVACID [Suspect]
     Active Substance: LANSOPRAZOLE
     Indication: GASTROOESOPHAGEAL REFLUX DISEASE
     Dosage: UNK
     Route: 065
  2. PREVACID [Suspect]
     Active Substance: LANSOPRAZOLE
     Indication: GASTROOESOPHAGEAL REFLUX DISEASE
     Dosage: UNK
     Route: 065
  3. OMEPRAZOLE. [Suspect]
     Active Substance: OMEPRAZOLE
     Indication: GASTROOESOPHAGEAL REFLUX DISEASE
     Dosage: 20 MG, QD
     Route: 048

REACTIONS (20)
  - Urine abnormality [Unknown]
  - End stage renal disease [Unknown]
  - Nephritis [Unknown]
  - Renal artery stenosis [Unknown]
  - Renal failure [Unknown]
  - Nocturia [Unknown]
  - Dysuria [Unknown]
  - Glomerular filtration rate decreased [Unknown]
  - Tubulointerstitial nephritis [Unknown]
  - Nephropathy [Unknown]
  - Perirenal haematoma [Unknown]
  - Hypertensive nephropathy [Unknown]
  - Renal cyst [Unknown]
  - Proteinuria [Unknown]
  - Chronic kidney disease [Unknown]
  - Renal impairment [Unknown]
  - Kidney fibrosis [Unknown]
  - Nephritic syndrome [Unknown]
  - Haematuria [Unknown]
  - Blood creatinine increased [Unknown]
